FAERS Safety Report 15408148 (Version 2)
Quarter: 2018Q4

REPORT INFORMATION
  Report Type: Spontaneous
  Country: JP (occurrence: JP)
  Receive Date: 20180920
  Receipt Date: 20181023
  Transmission Date: 20190204
  Serious: Yes (Hospitalization, Other)
  Sender: FDA-Public Use
  Company Number: JP-JNJFOC-20180912548

PATIENT
  Age: 44 Year
  Sex: Male

DRUGS (1)
  1. REMICADE [Suspect]
     Active Substance: INFLIXIMAB
     Indication: ANKYLOSING SPONDYLITIS
     Route: 042

REACTIONS (8)
  - Peritonitis [Not Recovered/Not Resolved]
  - Rectal perforation [Unknown]
  - Proctitis [Not Recovered/Not Resolved]
  - Meningitis [Recovering/Resolving]
  - Cardio-respiratory arrest [Recovered/Resolved]
  - Severe invasive streptococcal infection [Not Recovered/Not Resolved]
  - Hypoxic-ischaemic encephalopathy [Unknown]
  - Seizure [Recovered/Resolved]
